FAERS Safety Report 7418195-4 (Version None)
Quarter: 2011Q2

REPORT INFORMATION
  Report Type: 
  Country: None (occurrence: None)
  Receive Date: 20110415
  Receipt Date: 20110408
  Transmission Date: 20111010
  Serious: Yes (Hospitalization, Other)
  Sender: FDA-Public Use
  Company Number: US-AMGEN-USASP2011014015

PATIENT
  Age: 63 Year
  Sex: Female
  Weight: 50.794 kg

DRUGS (2)
  1. PROLIA [Suspect]
     Indication: OSTEOPOROSIS POSTMENOPAUSAL
     Dosage: 60 MG, Q6MO
     Route: 058
  2. PROLIA [Suspect]

REACTIONS (3)
  - VAGINAL CYST [None]
  - POST PROCEDURAL HAEMORRHAGE [None]
  - FEMALE GENITAL TRACT FISTULA [None]
